FAERS Safety Report 12639114 (Version 1)
Quarter: 2016Q3

REPORT INFORMATION
  Report Type: Report from Study
  Country: DE (occurrence: DE)
  Receive Date: 20160810
  Receipt Date: 20160810
  Transmission Date: 20161109
  Serious: Yes (Hospitalization)
  Sender: FDA-Public Use
  Company Number: DE-ROCHE-1809459

PATIENT
  Age: 64 Year
  Sex: Female

DRUGS (4)
  1. SIMVAHEXAL [Concomitant]
     Active Substance: SIMVASTATIN
     Dosage: 0-0-1
     Route: 048
     Dates: start: 20100317
  2. RITUXIMAB [Suspect]
     Active Substance: RITUXIMAB
     Indication: MALIGNANT LYMPHOID NEOPLASM
     Dosage: CYCLE 1
     Route: 065
     Dates: start: 20100312
  3. IPRATROPIUM [Concomitant]
     Active Substance: IPRATROPIUM
     Dosage: 1-1-1
     Route: 048
     Dates: start: 20100317
  4. MIANSERIN HCL [Concomitant]
     Active Substance: MIANSERIN HYDROCHLORIDE
     Dosage: 1-1-0
     Route: 048
     Dates: start: 20100316

REACTIONS (4)
  - Vomiting [Not Recovered/Not Resolved]
  - Nausea [Not Recovered/Not Resolved]
  - Decreased appetite [Not Recovered/Not Resolved]
  - Gastroenteritis [Not Recovered/Not Resolved]

NARRATIVE: CASE EVENT DATE: 20100317
